FAERS Safety Report 9885772 (Version 3)
Quarter: 2014Q2

REPORT INFORMATION
  Report Type: Spontaneous
  Country: US (occurrence: US)
  Receive Date: 20140210
  Receipt Date: 20140505
  Transmission Date: 20141212
  Serious: Yes (Death, Hospitalization)
  Sender: FDA-Public Use
  Company Number: US-ACTELION-A-US2014-94476

PATIENT
  Age: 78 Year
  Sex: Male

DRUGS (12)
  1. OPSUMIT [Suspect]
     Indication: PULMONARY ARTERIAL HYPERTENSION
     Dosage: 10 MG, UNK
     Route: 048
     Dates: start: 20131201, end: 20140108
  2. XIFAXAN [Concomitant]
  3. TAMSULOSIN [Concomitant]
  4. METOLAZONE [Concomitant]
  5. BUMETANIDE [Concomitant]
  6. COLESTIPOL [Concomitant]
  7. EPLERENONE [Concomitant]
  8. LEVOTHYROXINE [Concomitant]
  9. DIGOXIN [Concomitant]
  10. FOLIC ACID [Concomitant]
  11. URSODIOL [Concomitant]
  12. WARFARIN [Concomitant]

REACTIONS (3)
  - Death [Fatal]
  - Hepatotoxicity [Recovering/Resolving]
  - Right ventricular failure [Unknown]
